FAERS Safety Report 13661293 (Version 1)
Quarter: 2017Q2

REPORT INFORMATION
  Report Type: Report from Study
  Country: US (occurrence: US)
  Receive Date: 20170616
  Receipt Date: 20170616
  Transmission Date: 20170830
  Serious: No
  Sender: FDA-Public Use
  Company Number: US-US WORLDMEDS, LLC-USW201701-000038

PATIENT
  Age: 61 Year
  Sex: Female

DRUGS (5)
  1. APOKYN [Suspect]
     Active Substance: APOMORPHINE HYDROCHLORIDE
     Indication: PARKINSON^S DISEASE
     Route: 058
     Dates: start: 20170102
  2. RYTARY [Concomitant]
     Active Substance: CARBIDOPA\LEVODOPA
     Indication: PARKINSON^S DISEASE
  3. LOSARTAN. [Concomitant]
     Active Substance: LOSARTAN
  4. TIGAN [Concomitant]
     Active Substance: TRIMETHOBENZAMIDE HYDROCHLORIDE
     Indication: NAUSEA
  5. MIRAPEX [Concomitant]
     Active Substance: PRAMIPEXOLE DIHYDROCHLORIDE

REACTIONS (4)
  - Anxiety [Recovered/Resolved]
  - Dizziness [Recovered/Resolved]
  - Nausea [Recovered/Resolved]
  - Headache [Recovered/Resolved]

NARRATIVE: CASE EVENT DATE: 20170103
